FAERS Safety Report 6547180-X (Version None)
Quarter: 2010Q1

REPORT INFORMATION
  Report Type: 
  Country: None (occurrence: None)
  Receive Date: 20100122
  Receipt Date: 20100114
  Transmission Date: 20100710
  Serious: Yes (Death)
  Sender: FDA-Public Use
  Company Number: GXKR2010CN00761

PATIENT
  Age: 61 Year
  Sex: Female

DRUGS (3)
  1. CYCLOSPORINE [Suspect]
     Indication: IMMUNOSUPPRESSION
     Dosage: 5 MG/KG/DAY
     Route: 065
  2. ARISTOLOCHIC ACID [Suspect]
     Route: 065
  3. STEROIDS NOS [Suspect]
     Indication: IMMUNOSUPPRESSION
     Dosage: TAPERED TO 0.1 MG/KG/DAY AFTER 1 YEAR
     Route: 065

REACTIONS (3)
  - NEPHROURETERECTOMY [None]
  - TRANSITIONAL CELL CARCINOMA [None]
  - TRANSURETHRAL BLADDER RESECTION [None]
